FAERS Safety Report 6406304 (Version 2)
Quarter: 2020Q3

REPORT INFORMATION
  Report Type: Report from Study
  Country: FR (occurrence: FR)
  Receive Date: 20070905
  Receipt Date: 20080708
  Transmission Date: 20201104
  Serious: Yes (Death)
  Sender: FDA-Public Use
  Company Number: FR-ROCHE-513217

PATIENT
  Age: 59 Year
  Sex: Female
  Weight: 80 kg

DRUGS (4)
  1. DEPAKENE [Concomitant]
     Active Substance: VALPROIC ACID
     Dates: start: 2002
  2. TAMOXIFEN CITRATE. [Concomitant]
     Active Substance: TAMOXIFEN CITRATE
     Dates: start: 20051220
  3. AMITRIPTYLINE HYDROCHLORIDE. [Concomitant]
     Active Substance: AMITRIPTYLINE HYDROCHLORIDE
     Dates: start: 200702
  4. IBANDRONIC ACID. [Suspect]
     Active Substance: IBANDRONIC ACID
     Indication: NEOPLASM PROPHYLAXIS
     Dosage: INFUSION OVER 15 MINS.
     Route: 042
     Dates: start: 20070801, end: 20070801

REACTIONS (1)
  - Death [Fatal]

NARRATIVE: CASE EVENT DATE: 20070823
